FAERS Safety Report 16466138 (Version 2)
Quarter: 2019Q3

REPORT INFORMATION
  Report Type: Other
  Country: US (occurrence: US)
  Receive Date: 20190621
  Receipt Date: 20190924
  Transmission Date: 20191004
  Serious: No
  Sender: FDA-Public Use
  Company Number: US-ACORDA-ACO_158752_2019

PATIENT
  Age: 67 Year
  Sex: Male

DRUGS (1)
  1. INBRIJA [Suspect]
     Active Substance: LEVODOPA
     Indication: PARKINSON^S DISEASE
     Dosage: 42MG, 2 CAPSULES UP TO FIVE TIMES PER DAY AS NEEDED (ALSO REPORTED AS 2 CAPSULES, PRN)
     Dates: start: 20190512

REACTIONS (2)
  - Device issue [Recovered/Resolved]
  - Cough [Not Recovered/Not Resolved]

NARRATIVE: CASE EVENT DATE: 20190512
